FAERS Safety Report 15215458 (Version 1)
Quarter: 2018Q3

REPORT INFORMATION
  Report Type: Spontaneous
  Country: US (occurrence: US)
  Receive Date: 20180730
  Receipt Date: 20180730
  Transmission Date: 20181010
  Serious: No
  Sender: FDA-Public Use
  Company Number: US-BAYER-2018-133277

PATIENT
  Age: 62 Year
  Sex: Male
  Weight: 110.98 kg

DRUGS (2)
  1. ALEVE [Suspect]
     Active Substance: NAPROXEN SODIUM
     Indication: PAIN
     Dosage: 9 DF, UNK
     Route: 048
     Dates: start: 20180710, end: 20180712
  2. ASA [Concomitant]
     Active Substance: ASPIRIN

REACTIONS (3)
  - Wrong drug administered [Recovered/Resolved]
  - Wrong dose [Unknown]
  - Expired product administered [Recovered/Resolved]

NARRATIVE: CASE EVENT DATE: 20180712
